FAERS Safety Report 6581346-8 (Version None)
Quarter: 2010Q1

REPORT INFORMATION
  Report Type: 
  Country: None (occurrence: None)
  Receive Date: 20100215
  Receipt Date: 20100202
  Transmission Date: 20100710
  Serious: Yes (Other)
  Sender: FDA-Public Use
  Company Number: US-JNJFOC-20100201115

PATIENT
  Age: 71 Year
  Sex: Female
  Weight: 70.31 kg

DRUGS (4)
  1. TYLENOL (CAPLET) [Suspect]
     Route: 048
  2. TYLENOL (CAPLET) [Suspect]
     Indication: ARTHRITIS
     Route: 048
  3. NARCOTIC ANALGESICS, NOS [Concomitant]
     Indication: ARTHRALGIA
     Dosage: DAILY USE FOR 2 YEARS
  4. PAIN MEDICATION [Concomitant]
     Route: 050

REACTIONS (6)
  - CHRONIC OBSTRUCTIVE PULMONARY DISEASE [None]
  - LUNG NEOPLASM [None]
  - NAUSEA [None]
  - PANCREATIC MASS [None]
  - PRODUCT QUALITY ISSUE [None]
  - VOMITING [None]
